FAERS Safety Report 6005513-7 (Version None)
Quarter: 2008Q4

REPORT INFORMATION
  Report Type: 
  Country: None (occurrence: None)
  Receive Date: 20081216
  Receipt Date: 20081216
  Transmission Date: 20090506
  Serious: No
  Sender: FDA-Public Use
  Company Number: None

PATIENT
  Sex: Female

DRUGS (1)
  1. HYDROXYCHLOROQUINE SULFATE [Suspect]
     Dosage: 200MG BID PO
     Route: 048
     Dates: start: 20060101

REACTIONS (2)
  - DIARRHOEA [None]
  - RASH [None]
